FAERS Safety Report 6087099-4 (Version None)
Quarter: 2009Q1

REPORT INFORMATION
  Report Type: 
  Country: None (occurrence: None)
  Receive Date: 20090223
  Receipt Date: 20090213
  Transmission Date: 20090719
  Serious: Yes (Other)
  Sender: FDA-Public Use
  Company Number: US-ELI_LILLY_AND_COMPANY-US200812006107

PATIENT
  Sex: Female
  Weight: 65.76 kg

DRUGS (7)
  1. BYETTA [Suspect]
     Indication: GLUCOSE TOLERANCE IMPAIRED
     Dosage: 5 UG, 2/D
     Route: 058
     Dates: start: 20070801
  2. BYETTA [Suspect]
     Dosage: 5 UG, 2/D
     Route: 058
  3. SYNTHROID [Concomitant]
     Indication: THYROID DISORDER
     Dosage: UNK, UNKNOWN
  4. ESTRADIOL [Concomitant]
     Dosage: 0.5 MG, UNKNOWN
  5. LISINOPRIL [Concomitant]
     Indication: BLOOD PRESSURE
     Dosage: UNK, UNKNOWN
  6. DESITIN [Concomitant]
     Dosage: UNK, UNKNOWN
  7. ANTIHYPERTENSIVES [Concomitant]
     Indication: HYPERTENSION

REACTIONS (6)
  - CONTUSION [None]
  - DRY SKIN [None]
  - NEOPLASM MALIGNANT [None]
  - RASH [None]
  - SKIN DISCOLOURATION [None]
  - WEIGHT DECREASED [None]
